FAERS Safety Report 4548768-8 (Version None)
Quarter: 2004Q4

REPORT INFORMATION
  Report Type: 
  Country: None (occurrence: None)
  Receive Date: 20041220
  Receipt Date: 20040621
  Transmission Date: 20050328
  Serious: Yes (Hospitalization, Other)
  Sender: FDA-Public Use
  Company Number: USA021022980

PATIENT
  Age: 83 Year
  Sex: Female
  Weight: 45.3597 kg

DRUGS (13)
  1. HUMALOG [Suspect]
     Dates: start: 19960101
  2. HUMULIN N [Suspect]
     Indication: DIABETES MELLITUS
     Dosage: 2 U/IN THE EVENING
     Dates: start: 19990101
  3. HUMULIN R [Suspect]
     Indication: DIABETES MELLITUS
     Dates: start: 19990101
  4. INSULIN-INSULIN ANIMAL (INSUL [Suspect]
     Indication: DIABETES MELLITUS
  5. LACTULOSE [Concomitant]
  6. SYNTHROID [Concomitant]
  7. ESTRADIOL [Concomitant]
  8. MULTIVITAMIN [Concomitant]
  9. DIOVAN [Concomitant]
  10. VITAMIN B-12 [Concomitant]
  11. LANTUS [Concomitant]
  12. XANAX [Concomitant]
  13. LASIX [Concomitant]

REACTIONS (22)
  - ARTHRALGIA [None]
  - AUTONOMIC NEUROPATHY [None]
  - BLEPHARITIS [None]
  - BLOOD CHOLESTEROL INCREASED [None]
  - BLOOD GLUCOSE DECREASED [None]
  - BLOOD GLUCOSE INCREASED [None]
  - CYSTITIS [None]
  - EYE DISORDER [None]
  - HOARSENESS [None]
  - HYPERHIDROSIS [None]
  - HYPERTENSION [None]
  - IMPAIRED GASTRIC EMPTYING [None]
  - INCONTINENCE [None]
  - INJECTION SITE CALCIFICATION [None]
  - INSOMNIA [None]
  - MACULAR DEGENERATION [None]
  - MALABSORPTION [None]
  - PRURITUS [None]
  - RASH PRURITIC [None]
  - SEPSIS [None]
  - VISUAL ACUITY REDUCED [None]
  - WEIGHT DECREASED [None]
